FAERS Safety Report 9840056 (Version 1)
Quarter: 2013Q4

REPORT INFORMATION
  Report Type: Spontaneous
  Country: US (occurrence: None)
  Receive Date: 20131206
  Receipt Date: 20131206
  Transmission Date: 20140711
  Serious: Yes (Hospitalization)
  Sender: FDA-Public Use
  Company Number: 361605

PATIENT
  Age: 47 Year
  Sex: Male
  Weight: 92.5 kg

DRUGS (2)
  1. NOVOLOG MIX 70/30 [Suspect]
     Indication: DIABETES MELLITUS
     Dosage: 4X/DAY, SUBCUTANEOUS
     Route: 058
     Dates: end: 2012
  2. LISINOPRIL (LISINOPRIL) [Concomitant]

REACTIONS (3)
  - Diabetic ketoacidosis [None]
  - Laboratory test abnormal [None]
  - Neuropathy peripheral [None]
